FAERS Safety Report 6504366-8 (Version None)
Quarter: 2009Q4

REPORT INFORMATION
  Report Type: 
  Country: None (occurrence: None)
  Receive Date: 20091217
  Receipt Date: 20091207
  Transmission Date: 20100525
  Serious: Yes (Other)
  Sender: FDA-Public Use
  Company Number: US-GENENTECH-295726

PATIENT
  Age: 19 Year
  Sex: Female

DRUGS (4)
  1. RITUXAN [Suspect]
     Indication: MYOSITIS
     Dosage: 1000 MG, UNK
     Route: 042
     Dates: start: 20061101
  2. METHYLPREDNISOLONE [Suspect]
     Indication: MYOSITIS
     Dosage: 100 MG, UNK
     Route: 065
     Dates: start: 20061101
  3. METHYLPREDNISOLONE [Suspect]
     Dosage: 32 MG, UNK
     Route: 065
     Dates: end: 20070701
  4. METHYLPREDNISOLONE [Suspect]
     Dosage: UNK
     Route: 065
     Dates: start: 20070701

REACTIONS (3)
  - ABORTION SPONTANEOUS [None]
  - DRUG EXPOSURE DURING PREGNANCY [None]
  - PREGNANCY [None]
